FAERS Safety Report 9748187 (Version 2)
Quarter: 2013Q4

REPORT INFORMATION
  Report Type: Spontaneous
  Country: US (occurrence: US)
  Receive Date: 20131212
  Receipt Date: 20131227
  Transmission Date: 20140711
  Serious: Yes (Other)
  Sender: FDA-Public Use
  Company Number: US-BAYER-2013-149380

PATIENT
  Sex: Male

DRUGS (21)
  1. BETASERON [Suspect]
     Indication: MULTIPLE SCLEROSIS
     Dosage: 0.25 MG, QOD
     Route: 058
     Dates: start: 2002
  2. COPAXONE [Suspect]
  3. BRIMONIDINE [Concomitant]
  4. MELATONIN [Concomitant]
  5. MAGNESIUM [Concomitant]
  6. FLOVENT [Concomitant]
  7. PROVENTIL HFA [Concomitant]
  8. PROVIGIL [Concomitant]
  9. PROZAC [Concomitant]
  10. PAXIL [Concomitant]
  11. VITAMIN D3 [Concomitant]
  12. AMANTADINE [Concomitant]
  13. BACLOFEN [Concomitant]
  14. FLONASE [Concomitant]
  15. DEPAKOTE [Concomitant]
  16. VITAMIN B12 [Concomitant]
  17. VITAMIN C [Concomitant]
  18. VITAMIN D [Concomitant]
  19. CALCIUM W/VITAMIN D NOS [Concomitant]
  20. IBUPROFEN [Concomitant]
  21. QUININE SULFATE [Concomitant]

REACTIONS (5)
  - Convulsion [Unknown]
  - Normal tension glaucoma [Unknown]
  - Hypoaesthesia [Unknown]
  - Muscle spasticity [Unknown]
  - Fatigue [Unknown]
